FAERS Safety Report 12127934 (Version 2)
Quarter: 2016Q1

REPORT INFORMATION
  Report Type: Spontaneous
  Country: CH (occurrence: ES)
  Receive Date: 20160229
  Receipt Date: 20160229
  Transmission Date: 20160526
  Serious: Yes (Other)
  Sender: FDA-Public Use
  Company Number: CH-LPDUSPRD-20160174

PATIENT
  Age: 88 Year
  Sex: Female

DRUGS (2)
  1. FERINJECT [Suspect]
     Active Substance: FERRIC CARBOXYMALTOSE
     Dosage: 1000 MG ONE TIME DOSE
     Route: 041
     Dates: start: 20160121, end: 20160121
  2. OPTOVITE B12 [Suspect]
     Active Substance: CYANOCOBALAMIN
     Dosage: 1 MG ONE TIME
     Route: 030
     Dates: start: 20160121, end: 20160121

REACTIONS (2)
  - Eosinophilia [Unknown]
  - Pruritus generalised [Unknown]

NARRATIVE: CASE EVENT DATE: 201601
